FAERS Safety Report 8138301 (Version 4)
Quarter: 2013Q2

REPORT INFORMATION
  Report Type: Spontaneous
  Country: US (occurrence: US)
  Receive Date: 20110915
  Receipt Date: 20130523
  Transmission Date: 20140414
  Serious: Yes (Hospitalization)
  Sender: FDA-Public Use
  Company Number: US-BAYER-2011-084580

PATIENT
  Age: 45 Year
  Sex: Female
  Weight: 72.56 kg

DRUGS (10)
  1. OCELLA [Suspect]
     Indication: CONTRACEPTION
     Dosage: UNK
     Dates: start: 200810, end: 201006
  2. YASMIN [Suspect]
     Indication: CONTRACEPTION
     Dosage: UNK
     Dates: start: 2006, end: 201006
  3. YASMIN [Suspect]
     Indication: CONTRACEPTION
     Dosage: UNK
     Dates: start: 200608, end: 200609
  4. VITAMIN C [Concomitant]
  5. MOTRIN [Concomitant]
  6. HERBAL PREPARATION [Concomitant]
  7. PRESCRIPTION DIET MEDICATIONS [Concomitant]
  8. LORAZEPAM [Concomitant]
     Dosage: 0.5 MG, UNK
     Dates: start: 20060811, end: 20120317
  9. PERCOCET [Concomitant]
     Dosage: UNK
     Dates: start: 20100607
  10. PHENERGAN [Concomitant]
     Indication: NAUSEA
     Dosage: 25 MG, UNK
     Dates: start: 20100607

REACTIONS (6)
  - Deep vein thrombosis [Recovered/Resolved]
  - Thrombosis [Recovered/Resolved]
  - Injury [Recovered/Resolved]
  - Pain [Recovered/Resolved]
  - General physical health deterioration [None]
  - Emotional distress [None]
